FAERS Safety Report 10211504 (Version 1)
Quarter: 2014Q2

REPORT INFORMATION
  Report Type: Report from Study
  Country: US (occurrence: US)
  Receive Date: 20140602
  Receipt Date: 20140602
  Transmission Date: 20141212
  Serious: Yes (Other)
  Sender: FDA-Public Use
  Company Number: US-BAXTER-2014BAX026849

PATIENT
  Sex: Male

DRUGS (2)
  1. CYCLOPHOSPHAMIDE FOR INJECTION, USP [Suspect]
     Indication: ACUTE LYMPHOCYTIC LEUKAEMIA
     Dosage: 900 MG/M2 DAY -2
     Route: 065
  2. FLUDARABINE [Suspect]
     Indication: ACUTE LYMPHOCYTIC LEUKAEMIA
     Dosage: 25 MG/M2 DAY -2,-3,-4
     Route: 065

REACTIONS (1)
  - Scrotal oedema [Unknown]
